FAERS Safety Report 5570275-4 (Version None)
Quarter: 2007Q4

REPORT INFORMATION
  Report Type: 
  Country: None (occurrence: None)
  Receive Date: 20071219
  Receipt Date: 20071219
  Transmission Date: 20080405
  Serious: Yes (Hospitalization)
  Sender: FDA-Public Use
  Company Number: None

PATIENT
  Age: 71 Year
  Sex: Female
  Weight: 54.4316 kg

DRUGS (1)
  1. HYDROXYUREA [Suspect]
     Indication: PLATELET COUNT INCREASED
     Dosage: 500MG 1X A DAY ORAL
     Route: 048
     Dates: start: 20070921, end: 20071018

REACTIONS (3)
  - BURNING SENSATION [None]
  - JOINT SWELLING [None]
  - VASCULITIS [None]
